FAERS Safety Report 11596754 (Version 1)
Quarter: 2015Q4

REPORT INFORMATION
  Report Type: Spontaneous
  Country: US (occurrence: None)
  Receive Date: 20151005
  Receipt Date: 20151005
  Transmission Date: 20160304
  Serious: No
  Sender: FDA-Public Use
  Company Number: None

PATIENT
  Age: 61 Year
  Sex: Female
  Weight: 65.32 kg

DRUGS (3)
  1. CACLIUM WITH D [Concomitant]
     Dosage: INJECTION
  2. PROLIA [Suspect]
     Active Substance: DENOSUMAB
     Dosage: 2 X PER YEAR
     Dates: start: 20140815, end: 20151001
  3. MULTI VITAMIN [Concomitant]
     Active Substance: VITAMINS

REACTIONS (1)
  - Alopecia [None]

NARRATIVE: CASE EVENT DATE: 20151003
